FAERS Safety Report 23718372 (Version 1)
Quarter: 2024Q2

REPORT INFORMATION
  Report Type: Spontaneous
  Country: KR (occurrence: KR)
  Receive Date: 20240408
  Receipt Date: 20240408
  Transmission Date: 20240716
  Serious: Yes (Hospitalization)
  Sender: FDA-Public Use
  Company Number: KR-TAKEDA-2024TUS031168

PATIENT
  Age: 18 Year
  Sex: Male

DRUGS (2)
  1. PANTOPRAZOLE SODIUM [Suspect]
     Active Substance: PANTOPRAZOLE SODIUM
     Indication: Gastric ulcer
     Dosage: UNK, 1X/DAY
     Route: 042
  2. TIROPRAMIDE HYDROCHLORIDE [Suspect]
     Active Substance: TIROPRAMIDE HYDROCHLORIDE
     Indication: Gastric ulcer
     Dosage: UNK, 1X/DAY
     Route: 030

REACTIONS (2)
  - Dyspnoea [Recovered/Resolved]
  - Hypotension [Recovered/Resolved]
